FAERS Safety Report 21085516 (Version 1)
Quarter: 2022Q3

REPORT INFORMATION
  Report Type: Spontaneous
  Country: US (occurrence: US)
  Receive Date: 20220715
  Receipt Date: 20220715
  Transmission Date: 20221027
  Serious: Yes (Hospitalization)
  Sender: FDA-Public Use
  Company Number: US-ABBOTT-04P-163-0280711-00

PATIENT
  Age: 46 Year
  Sex: Female
  Weight: 50.848 kg

DRUGS (6)
  1. HUMIRA [Suspect]
     Active Substance: ADALIMUMAB
     Indication: Rheumatoid arthritis
     Route: 058
     Dates: start: 200308
  2. METHOTREXATE [Concomitant]
     Active Substance: METHOTREXATE
     Indication: Rheumatoid arthritis
     Route: 048
     Dates: start: 200307
  3. PREDNISONE [Concomitant]
     Active Substance: PREDNISONE
     Indication: Rheumatoid arthritis
     Route: 048
     Dates: start: 200307, end: 200410
  4. ALEVE [Concomitant]
     Active Substance: NAPROXEN SODIUM
     Indication: Rheumatoid arthritis
     Route: 048
     Dates: start: 2003
  5. IRON [Concomitant]
     Active Substance: IRON
     Indication: Rheumatoid arthritis
     Route: 048
     Dates: start: 2003
  6. FOLIC ACID [Concomitant]
     Active Substance: FOLIC ACID
     Indication: Rheumatoid arthritis
     Route: 048
     Dates: start: 2003

REACTIONS (4)
  - Anaemia [Recovered/Resolved]
  - Vaginal haemorrhage [Recovered/Resolved]
  - Blister [None]
  - Menstruation irregular [None]

NARRATIVE: CASE EVENT DATE: 20040701
